FAERS Safety Report 14421299 (Version 2)
Quarter: 2018Q1

REPORT INFORMATION
  Report Type: Spontaneous
  Country: US (occurrence: US)
  Receive Date: 20180122
  Receipt Date: 20180123
  Transmission Date: 20180509
  Serious: No
  Sender: FDA-Public Use
  Company Number: US-BIOGEN-2018BI00510206

PATIENT
  Sex: Female

DRUGS (1)
  1. AVONEX [Suspect]
     Active Substance: INTERFERON BETA-1A
     Indication: MULTIPLE SCLEROSIS
     Route: 065
     Dates: start: 20120712

REACTIONS (6)
  - Drug dose omission [Unknown]
  - Multiple sclerosis [Unknown]
  - Insomnia [Unknown]
  - Lower respiratory tract infection [Unknown]
  - Speech disorder [Unknown]
  - Malaise [Unknown]
